FAERS Safety Report 6599886-4 (Version None)
Quarter: 2010Q1

REPORT INFORMATION
  Report Type: 
  Country: None (occurrence: None)
  Receive Date: 20100217
  Receipt Date: 20100201
  Transmission Date: 20100710
  Serious: Yes (Hospitalization)
  Sender: FDA-Public Use
  Company Number: 2010AL000696

PATIENT
  Age: 67 Year
  Sex: Female

DRUGS (15)
  1. SPIRONOLACTONE [Suspect]
     Indication: ESSENTIAL HYPERTENSION
     Dosage: PO
     Route: 048
     Dates: end: 20091117
  2. IMPUGAN [Concomitant]
  3. MOVICOL [Concomitant]
  4. OMEPRAZOL [Concomitant]
  5. ENALAPRIL MALEATE [Concomitant]
  6. SIMVASTATIN [Concomitant]
  7. FOLACIN [Concomitant]
  8. ALVEDON [Concomitant]
  9. BETAPRED [Concomitant]
  10. STESOLID [Concomitant]
  11. DIGOXIN BIOPHAUSIA [Concomitant]
  12. ACETAMINOPHEN W/ CODEINE [Concomitant]
  13. TROMBYL [Concomitant]
  14. IMOVANE [Concomitant]
  15. BETOLVIDON [Concomitant]

REACTIONS (2)
  - ERYSIPELAS [None]
  - HYPONATRAEMIA [None]
